FAERS Safety Report 7938974-4 (Version None)
Quarter: 2011Q4

REPORT INFORMATION
  Report Type: 
  Country: None (occurrence: None)
  Receive Date: 20111124
  Receipt Date: 20111118
  Transmission Date: 20120403
  Serious: Yes (Other)
  Sender: FDA-Public Use
  Company Number: US-PFIZER INC-2011231645

PATIENT
  Sex: Male
  Weight: 86.168 kg

DRUGS (6)
  1. TOVIAZ [Suspect]
     Indication: HYPERTONIC BLADDER
     Dosage: 4 MG, 1X/DAY
     Route: 048
     Dates: start: 20110925
  2. SYNTHROID [Concomitant]
     Dosage: UNK
  3. GELNIQUE [Suspect]
     Dosage: UNK
  4. ZOCOR [Concomitant]
     Dosage: UNK
  5. DIOVAN [Concomitant]
     Dosage: UNK
  6. SINGULAIR [Concomitant]
     Dosage: UNK, 1X/DAY

REACTIONS (5)
  - URINE FLOW DECREASED [None]
  - DRUG INEFFECTIVE [None]
  - POOR QUALITY SLEEP [None]
  - URINARY RETENTION [None]
  - POLLAKIURIA [None]
